FAERS Safety Report 8506897-8 (Version None)
Quarter: 2012Q3

REPORT INFORMATION
  Report Type: 
  Country: None (occurrence: None)
  Receive Date: 20120712
  Receipt Date: 20120705
  Transmission Date: 20120928
  Serious: Yes (Other)
  Sender: FDA-Public Use
  Company Number: US-INCYTE CORPORATION-2012IN000545

PATIENT
  Sex: Female

DRUGS (4)
  1. ENBREL [Concomitant]
     Indication: RHEUMATOID ARTHRITIS
  2. JAKAFI [Suspect]
     Dosage: 10 MG, BID
     Route: 048
     Dates: start: 20120420, end: 20120514
  3. JAKAFI [Suspect]
     Indication: MYELOFIBROSIS
     Dosage: 20 MG, BID
     Route: 048
     Dates: start: 20120304, end: 20120406
  4. JAKAFI [Suspect]
     Dosage: 10 MG, BID
     Route: 048
     Dates: start: 20120516, end: 20120101

REACTIONS (12)
  - BACK PAIN [None]
  - HAEMOGLOBIN DECREASED [None]
  - THIRST [None]
  - DIZZINESS [None]
  - HYPERBILIRUBINAEMIA [None]
  - PYREXIA [None]
  - NAUSEA [None]
  - ABDOMINAL PAIN UPPER [None]
  - WRONG TECHNIQUE IN DRUG USAGE PROCESS [None]
  - LEUKOPENIA [None]
  - BLOOD COUNT ABNORMAL [None]
  - TREATMENT NONCOMPLIANCE [None]
